FAERS Safety Report 7456215-1 (Version None)
Quarter: 2011Q2

REPORT INFORMATION
  Report Type: 
  Country: None (occurrence: None)
  Receive Date: 20110426
  Receipt Date: 20110420
  Transmission Date: 20111010
  Serious: Yes (Other)
  Sender: FDA-Public Use
  Company Number: A0915445A

PATIENT
  Age: 41 Year
  Sex: Female

DRUGS (2)
  1. UREA PEROXIDE [Suspect]
  2. UREA PEROXIDE [Suspect]
     Dosage: AURAL
     Route: 001

REACTIONS (4)
  - DRUG ADMINISTRATION ERROR [None]
  - EAR HAEMORRHAGE [None]
  - WRONG TECHNIQUE IN DRUG USAGE PROCESS [None]
  - EAR DISCOMFORT [None]
